FAERS Safety Report 10855854 (Version 1)
Quarter: 2015Q1

REPORT INFORMATION
  Report Type: Spontaneous
  Country: US (occurrence: US)
  Receive Date: 20150223
  Receipt Date: 20150223
  Transmission Date: 20150721
  Serious: Yes (Other)
  Sender: FDA-Public Use
  Company Number: US-PFIZER INC-2015065159

PATIENT
  Sex: Male

DRUGS (1)
  1. VIAGRA [Suspect]
     Active Substance: SILDENAFIL CITRATE
     Indication: GENITAL DISORDER MALE
     Dosage: LOWEST DOSE

REACTIONS (5)
  - Painful erection [Unknown]
  - Premature ejaculation [Unknown]
  - Phimosis [Unknown]
  - Penile discharge [Unknown]
  - Penile adhesion [Unknown]
